FAERS Safety Report 18486289 (Version 2)
Quarter: 2020Q4

REPORT INFORMATION
  Report Type: Report from Study
  Country: IT (occurrence: IT)
  Receive Date: 20201110
  Receipt Date: 20201112
  Transmission Date: 20210114
  Serious: Yes (Hospitalization)
  Sender: FDA-Public Use
  Company Number: IT-TEVA-2020-IT-1846645

PATIENT
  Age: 77 Year
  Sex: Female
  Weight: 79 kg

DRUGS (2)
  1. GEMCITABINE. [Suspect]
     Active Substance: GEMCITABINE
     Indication: BLADDER CANCER
     Dosage: 1 GRAM
     Route: 042
     Dates: start: 20200915, end: 20200922
  2. CARBOPLATIN. [Suspect]
     Active Substance: CARBOPLATIN
     Indication: BLADDER CANCER
     Dosage: 600 MG
     Route: 042
     Dates: start: 20200915, end: 20200915

REACTIONS (7)
  - Pancytopenia [Recovering/Resolving]
  - Hyperpyrexia [Recovering/Resolving]
  - Mucosal inflammation [Recovering/Resolving]
  - Abdominal pain [Recovering/Resolving]
  - Sepsis [Recovering/Resolving]
  - Diarrhoea [Recovering/Resolving]
  - Asthenia [Recovering/Resolving]

NARRATIVE: CASE EVENT DATE: 20200923
